FAERS Safety Report 7899814-5 (Version None)
Quarter: 2011Q4

REPORT INFORMATION
  Report Type: 
  Country: None (occurrence: None)
  Receive Date: 20111107
  Receipt Date: 20110922
  Transmission Date: 20120403
  Serious: No
  Sender: FDA-Public Use
  Company Number: US-AMGEN-USASP2011047050

PATIENT
  Sex: Female

DRUGS (2)
  1. ENBREL [Suspect]
     Indication: ANKYLOSING SPONDYLITIS
     Dosage: 50 MG, QWK
     Route: 058
     Dates: start: 20110705
  2. TREXALL [Concomitant]
     Dates: start: 20100101

REACTIONS (11)
  - CONSTIPATION [None]
  - NAUSEA [None]
  - EXFOLIATIVE RASH [None]
  - DECREASED APPETITE [None]
  - HEADACHE [None]
  - PRURITUS [None]
  - DIZZINESS [None]
  - FATIGUE [None]
  - ABDOMINAL PAIN UPPER [None]
  - RASH MACULO-PAPULAR [None]
  - SINUS HEADACHE [None]
